FAERS Safety Report 8963101 (Version 1)
Quarter: 2012Q4

REPORT INFORMATION
  Report Type: Spontaneous
  Country: NL (occurrence: None)
  Receive Date: 20121205
  Receipt Date: 20121205
  Transmission Date: 20130627
  Serious: Yes (Death)
  Sender: FDA-Public Use
  Company Number: FK201203549

PATIENT
  Age: 19 Year
  Sex: Male

DRUGS (1)
  1. METHYLPREDNISOLONE [Suspect]
     Indication: PRODUCT USED FOR UNKNOWN INDICATION
     Route: 042

REACTIONS (6)
  - Cerebral venous thrombosis [None]
  - Post lumbar puncture syndrome [None]
  - Grand mal convulsion [None]
  - Somnolence [None]
  - Intracranial pressure increased [None]
  - Brain herniation [None]
